FAERS Safety Report 6463610-6 (Version None)
Quarter: 2009Q4

REPORT INFORMATION
  Report Type: 
  Country: None (occurrence: None)
  Receive Date: 20091130
  Receipt Date: 20091130
  Transmission Date: 20100525
  Serious: No
  Sender: FDA-Public Use
  Company Number: None

PATIENT
  Age: 75 Year
  Sex: Female
  Weight: 52.1637 kg

DRUGS (1)
  1. LEVITRA [Suspect]
     Dosage: 1

REACTIONS (3)
  - ACCIDENTAL EXPOSURE [None]
  - MEDICATION ERROR [None]
  - WRONG DRUG ADMINISTERED [None]
